FAERS Safety Report 8431821-6 (Version None)
Quarter: 2012Q2

REPORT INFORMATION
  Report Type: 
  Country: None (occurrence: None)
  Receive Date: 20120613
  Receipt Date: 20120608
  Transmission Date: 20120825
  Serious: Yes (Hospitalization, Other)
  Sender: FDA-Public Use
  Company Number: SA-BAYER-1199010736

PATIENT
  Age: 21 Year
  Sex: Male

DRUGS (1)
  1. PRAZIQUANTEL [Suspect]
     Indication: SCHISTOSOMIASIS
     Dosage: 1.8 G, ONCE
     Route: 048

REACTIONS (3)
  - POLYSEROSITIS [None]
  - ACUTE RESPIRATORY FAILURE [None]
  - EOSINOPHILIA [None]
